FAERS Safety Report 8880334 (Version 1)
Quarter: 2012Q4

REPORT INFORMATION
  Report Type: 
  Country: US (occurrence: US)
  Receive Date: 20121101
  Receipt Date: 20121101
  Transmission Date: 20130627
  Serious: Yes (Hospitalization)
  Sender: FDA-Public Use
  Company Number: US-PFIZER INC-2012265514

PATIENT
  Age: 78 Year
  Sex: Male

DRUGS (3)
  1. EPIRUBICIN HCL [Suspect]
     Indication: GASTRIC CANCER
     Dosage: UNK
  2. OXALIPLATIN [Suspect]
     Indication: GASTRIC CANCER
     Dosage: UNK
  3. CAPECITABINE [Suspect]
     Indication: GASTRIC CANCER
     Dosage: UNK

REACTIONS (5)
  - Diarrhoea [Recovered/Resolved]
  - Clostridium difficile colitis [Unknown]
  - Dehydration [Unknown]
  - Renal impairment [Unknown]
  - Haemodynamic instability [Unknown]
